FAERS Safety Report 7506551-5 (Version None)
Quarter: 2011Q2

REPORT INFORMATION
  Report Type: 
  Country: None (occurrence: None)
  Receive Date: 20110526
  Receipt Date: 20110524
  Transmission Date: 20111010
  Serious: Yes (Hospitalization, Disabling, Other)
  Sender: FDA-Public Use
  Company Number: US-MERCK-1001USA00981

PATIENT
  Age: 54 Year
  Sex: Female
  Weight: 75 kg

DRUGS (5)
  1. ASCORBIC ACID AND VITAMIN B COMPLEX [Concomitant]
     Route: 065
  2. FOSAMAX [Suspect]
     Indication: OSTEOPOROSIS
     Route: 048
     Dates: start: 19991101, end: 20070401
  3. CALCIUM (UNSPECIFIED) AND VITAMIN D (UNSPECIFIED) [Concomitant]
     Route: 065
  4. VITA C [Concomitant]
     Route: 065
  5. IRON (UNSPECIFIED) AND VITAMINS (UNSPECIFIED) [Concomitant]
     Route: 065

REACTIONS (56)
  - ANAEMIA POSTOPERATIVE [None]
  - JOINT INJURY [None]
  - LOW TURNOVER OSTEOPATHY [None]
  - MENISCUS LESION [None]
  - BACK PAIN [None]
  - DIVERTICULUM [None]
  - EMPHYSEMA [None]
  - HYPERCALCAEMIA [None]
  - GAIT DISTURBANCE [None]
  - OEDEMA PERIPHERAL [None]
  - TENDON DISORDER [None]
  - NERVE COMPRESSION [None]
  - INTERVERTEBRAL DISC DEGENERATION [None]
  - DEPRESSION [None]
  - CONSTIPATION [None]
  - SPINAL OSTEOARTHRITIS [None]
  - HIATUS HERNIA [None]
  - DRUG HYPERSENSITIVITY [None]
  - BLOOD ALKALINE PHOSPHATASE INCREASED [None]
  - STRESS FRACTURE [None]
  - SPONDYLITIS [None]
  - NERVE INJURY [None]
  - MYOFASCIAL PAIN SYNDROME [None]
  - HAEMATOCRIT DECREASED [None]
  - ADVERSE DRUG REACTION [None]
  - FALL [None]
  - OVERDOSE [None]
  - INTERVERTEBRAL DISC DISORDER [None]
  - FOOT FRACTURE [None]
  - SENILE OSTEOPOROSIS [None]
  - PAIN IN EXTREMITY [None]
  - ARTHROPATHY [None]
  - INJURY [None]
  - LUMBAR RADICULOPATHY [None]
  - LIMB INJURY [None]
  - SCOLIOSIS [None]
  - JOINT DISLOCATION [None]
  - MUSCLE SPASMS [None]
  - INTERVERTEBRAL DISC PROTRUSION [None]
  - OSTEOARTHRITIS [None]
  - BURSITIS [None]
  - JOINT SPRAIN [None]
  - INCREASED TENDENCY TO BRUISE [None]
  - HYPERCHOLESTEROLAEMIA [None]
  - FEMUR FRACTURE [None]
  - COAGULOPATHY [None]
  - MUSCULOSKELETAL PAIN [None]
  - VITAMIN D DEFICIENCY [None]
  - VASCULAR STENOSIS [None]
  - URINARY TRACT INFECTION [None]
  - OSTEOPENIA [None]
  - INFLAMMATORY BOWEL DISEASE [None]
  - DIARRHOEA [None]
  - OSTEOPOROSIS [None]
  - ARTHRALGIA [None]
  - ROTATOR CUFF SYNDROME [None]
